FAERS Safety Report 4470430-0 (Version None)
Quarter: 2004Q3

REPORT INFORMATION
  Report Type: 
  Country: None (occurrence: None)
  Receive Date: 20040909
  Receipt Date: 20040615
  Transmission Date: 20050211
  Serious: Yes (Other)
  Sender: FDA-Public Use
  Company Number: A03200401917

PATIENT
  Age: 60 Year
  Sex: Male
  Weight: 103.4201 kg

DRUGS (9)
  1. ELOXATIN [Suspect]
     Indication: COLON CANCER
     Dosage: 214 MG OTHER  - INTRAVENOUS NOS
     Route: 042
     Dates: start: 20040614, end: 20040614
  2. FLUOROCURACIL [Concomitant]
  3. LEUCOVORIN [Concomitant]
  4. BEVACIZUMAB [Concomitant]
  5. DOLASETRON MESILATE [Concomitant]
  6. DEXAMETHASONE [Concomitant]
  7. METOCLOPROMIDE [Concomitant]
  8. CALCIUM [Concomitant]
  9. MAGNESIUM [Concomitant]

REACTIONS (4)
  - BLOOD PRESSURE INCREASED [None]
  - GENERALISED ERYTHEMA [None]
  - HYPERHIDROSIS [None]
  - PRURITUS [None]
